FAERS Safety Report 4626925-X (Version None)
Quarter: 2005Q2

REPORT INFORMATION
  Report Type: 
  Country: None (occurrence: None)
  Receive Date: 20050405
  Receipt Date: 20050323
  Transmission Date: 20051028
  Serious: Yes (Other)
  Sender: FDA-Public Use
  Company Number: US-GLAXOSMITHKLINE-A0551180A

PATIENT
  Age: 3 Year
  Sex: Female
  Weight: 16.4 kg

DRUGS (1)
  1. TEMOVATE [Suspect]
     Indication: ALOPECIA
     Route: 061
     Dates: start: 20041001

REACTIONS (9)
  - ADRENAL SUPPRESSION [None]
  - CUSHINGOID [None]
  - GROWTH RETARDATION [None]
  - INCREASED APPETITE [None]
  - LIPOHYPERTROPHY [None]
  - MOOD SWINGS [None]
  - OFF LABEL USE [None]
  - SKIN STRIAE [None]
  - WEIGHT INCREASED [None]
